FAERS Safety Report 8116910-8 (Version None)
Quarter: 2012Q1

REPORT INFORMATION
  Report Type: 
  Country: None (occurrence: None)
  Receive Date: 20120206
  Receipt Date: 20120201
  Transmission Date: 20120608
  Serious: Yes (Death)
  Sender: FDA-Public Use
  Company Number: NO-PFIZER INC-2012027879

PATIENT
  Age: 56 Year
  Sex: Male

DRUGS (3)
  1. CARBOPLATIN [Suspect]
     Indication: TESTIS CANCER
     Dosage: 7X(GFR+25) MG DAILY, CYCLIC (DAY1-4)
  2. CYCLOPHOSPHAMIDE [Suspect]
     Indication: TESTIS CANCER
     Dosage: 1500 MG/M2 DAILY, CYCLIC (DAY 1-4)
  3. THIOTEPA [Suspect]
     Indication: TESTIS CANCER
     Dosage: 120 MG/M2 DAILY, CYCLIC (DAY 1-4)

REACTIONS (1)
  - CEREBRAL HAEMORRHAGE [None]
